FAERS Safety Report 7249815-5 (Version None)
Quarter: 2011Q1

REPORT INFORMATION
  Report Type: 
  Country: None (occurrence: None)
  Receive Date: 20110128
  Receipt Date: 20100423
  Transmission Date: 20110831
  Serious: No
  Sender: FDA-Public Use
  Company Number: A0856481A

PATIENT
  Sex: Male

DRUGS (2)
  1. WELLBUTRIN SR [Suspect]
     Dosage: 150MG TWICE PER DAY
     Route: 048
     Dates: start: 20100401, end: 20100401
  2. BUPROPION HCL [Suspect]
     Dosage: 75MG UNKNOWN
     Route: 048

REACTIONS (7)
  - NAUSEA [None]
  - HEADACHE [None]
  - MUSCULAR WEAKNESS [None]
  - WRONG TECHNIQUE IN DRUG USAGE PROCESS [None]
  - MUSCLE SPASMS [None]
  - DRUG INEFFECTIVE [None]
  - INSOMNIA [None]
